FAERS Safety Report 13239461 (Version 1)
Quarter: 2017Q1

REPORT INFORMATION
  Report Type: Spontaneous
  Country: CH (occurrence: CH)
  Receive Date: 20170216
  Receipt Date: 20170216
  Transmission Date: 20170428
  Serious: Yes (Life-Threatening, Hospitalization)
  Sender: FDA-Public Use
  Company Number: CH-BAYER-2017-023725

PATIENT
  Age: 79 Year
  Sex: Male
  Weight: 85.99 kg

DRUGS (9)
  1. BRILIQUE [Interacting]
     Active Substance: TICAGRELOR
     Indication: CORONARY ARTERY BYPASS
     Dosage: 90 MG, BID
     Dates: start: 201605
  2. SORTIS [Concomitant]
     Active Substance: ATORVASTATIN
     Dosage: 20 MG, QD
  3. CANDESARTAN CILEXETIL W/HYDROCHLOROTHIAZIDE [Concomitant]
     Active Substance: CANDESARTAN CILEXETIL\HYDROCHLOROTHIAZIDE
     Dosage: 1 DF, QD
  4. METOPROLOL SUCCINATE. [Concomitant]
     Active Substance: METOPROLOL SUCCINATE
     Dosage: 1.5 DF, 1TABLET AND THEN 0.5 TABLET
  5. DAFALGAN [Concomitant]
     Active Substance: ACETAMINOPHEN
     Dosage: 500 MG, PRN
  6. ASPIRIN CARDIO 100 MG [Suspect]
     Active Substance: ASPIRIN
     Indication: CORONARY ARTERY DISEASE
     Dosage: 100 MG, QD
  7. PANTOZOL [Concomitant]
     Active Substance: PANTOPRAZOLE SODIUM
     Dosage: 1 DF, QD
  8. PHENYLEPHRINE [PHENYLEPHRINE] [Concomitant]
  9. ADRENALINE [Concomitant]
     Active Substance: EPINEPHRINE
     Dosage: UNK, BID

REACTIONS (6)
  - Traumatic haemorrhage [Recovered/Resolved]
  - Cardiac arrest [Recovered/Resolved]
  - Frontotemporal dementia [Recovering/Resolving]
  - Drug interaction [Recovered/Resolved]
  - Epilepsy [Recovering/Resolving]
  - Haemorrhagic anaemia [Recovering/Resolving]

NARRATIVE: CASE EVENT DATE: 20170107
